FAERS Safety Report 25161564 (Version 1)
Quarter: 2025Q2

REPORT INFORMATION
  Report Type: Spontaneous
  Country: US (occurrence: None)
  Receive Date: 20250403
  Receipt Date: 20250403
  Transmission Date: 20250717
  Serious: Yes (Life-Threatening)
  Sender: FDA-CTU
  Company Number: None

PATIENT
  Age: 36 Year
  Sex: Male

DRUGS (1)
  1. XYLAZINE [Suspect]
     Active Substance: XYLAZINE

REACTIONS (2)
  - Toxicity to various agents [None]
  - Product quality issue [None]
